FAERS Safety Report 20646261 (Version 1)
Quarter: 2022Q1

REPORT INFORMATION
  Report Type: Spontaneous
  Country: US (occurrence: US)
  Receive Date: 20220329
  Receipt Date: 20220329
  Transmission Date: 20220424
  Serious: No
  Sender: FDA-Public Use
  Company Number: US-drreddys-SPO/USA/22/0147985

PATIENT
  Age: 23 Year
  Sex: Female

DRUGS (1)
  1. ZENATANE [Suspect]
     Active Substance: ISOTRETINOIN
     Indication: Product used for unknown indication
     Dosage: RMA ISSUE DATE: 21 JANUARY 2022 01:41:28 PM, 22 FEBRUARY 2022 12:41:39 PM

REACTIONS (2)
  - Blood cholesterol increased [Unknown]
  - Hepatic enzyme increased [Unknown]
